FAERS Safety Report 17856048 (Version 2)
Quarter: 2020Q2

REPORT INFORMATION
  Report Type: Spontaneous
  Country: US (occurrence: US)
  Receive Date: 20200603
  Receipt Date: 20200604
  Transmission Date: 20200714
  Serious: No
  Sender: FDA-Public Use
  Company Number: NVSC2020US152612

PATIENT
  Sex: Male

DRUGS (1)
  1. PROMACTA [Suspect]
     Active Substance: ELTROMBOPAG OLAMINE
     Indication: IMMUNE THROMBOCYTOPENIA
     Dosage: 25 MG, OTHER( 1 TABLET BY MOUTH DAILY FOR 30 DAYS,ADMINSTER ON EMPTY STOMACH, ONE HOUR OR 2 HOUR AFT
     Route: 048

REACTIONS (8)
  - Dyspnoea [Unknown]
  - Dizziness [Unknown]
  - Chromaturia [Unknown]
  - Migraine [Unknown]
  - Vision blurred [Unknown]
  - Platelet count decreased [Unknown]
  - Abdominal pain [Unknown]
  - Drug ineffective [Unknown]
